FAERS Safety Report 12085217 (Version 1)
Quarter: 2016Q1

REPORT INFORMATION
  Report Type: Spontaneous
  Country: FR (occurrence: FR)
  Receive Date: 20160217
  Receipt Date: 20160217
  Transmission Date: 20160526
  Serious: Yes (Hospitalization)
  Sender: FDA-Public Use
  Company Number: FR-PFIZER INC-2016088482

PATIENT
  Age: 67 Year
  Sex: Female

DRUGS (7)
  1. TRIATEC [Suspect]
     Active Substance: RAMIPRIL
     Dosage: 5 MG, DAILY
     Route: 048
     Dates: end: 20150927
  2. LOXEN [Concomitant]
     Active Substance: NICARDIPINE HYDROCHLORIDE
     Dosage: UNK
     Dates: end: 20150927
  3. FLUOXETINE [Concomitant]
     Active Substance: FLUOXETINE HYDROCHLORIDE
     Dosage: UNK
  4. HYPERIUM [Suspect]
     Active Substance: RILMENIDINE PHOSPHATE
     Dosage: 1 MG, DAILY
     Route: 048
     Dates: end: 20150927
  5. VALSARTAN. [Concomitant]
     Active Substance: VALSARTAN
     Dosage: UNK
  6. PYOSTACINE [Concomitant]
     Active Substance: PRISTINAMYCIN
     Indication: ERYSIPELAS
     Dosage: UNK
     Dates: start: 201509
  7. HYDROCHLOROTHIAZIDE. [Concomitant]
     Active Substance: HYDROCHLOROTHIAZIDE
     Dosage: UNK

REACTIONS (2)
  - Hypotension [Recovered/Resolved]
  - Fall [Recovered/Resolved]

NARRATIVE: CASE EVENT DATE: 20150925
